FAERS Safety Report 21838100 (Version 1)
Quarter: 2023Q1

REPORT INFORMATION
  Report Type: Spontaneous
  Country: CN (occurrence: CN)
  Receive Date: 20230109
  Receipt Date: 20230109
  Transmission Date: 20230418
  Serious: Yes (Other)
  Sender: FDA-Public Use
  Company Number: CN-FreseniusKabi-FK202300258

PATIENT
  Age: 57 Year
  Sex: Female
  Weight: 51 kg

DRUGS (5)
  1. INTRALIPID [Suspect]
     Active Substance: EGG PHOSPHOLIPIDS\GLYCERIN\SOYBEAN OIL
     Indication: Nutritional supplementation
     Route: 041
     Dates: start: 20221205, end: 20221206
  2. Compound Amino Acid Injection (18AA-V-SF) [Concomitant]
     Indication: Nutritional supplementation
     Route: 041
     Dates: start: 20221205, end: 20221206
  3. FLURBIPROFEN AXETIL [Concomitant]
     Active Substance: FLURBIPROFEN AXETIL
     Indication: Ankle fracture
     Dates: start: 20221205, end: 20221210
  4. CEFAZOLIN SODIUM [Concomitant]
     Active Substance: CEFAZOLIN SODIUM
     Indication: Ankle fracture
     Route: 041
     Dates: start: 20221205, end: 20221216
  5. PANTOPRAZOLE SODIUM [Concomitant]
     Active Substance: PANTOPRAZOLE SODIUM
     Indication: Ankle fracture
     Route: 041
     Dates: start: 20221205, end: 20221213

REACTIONS (1)
  - Anaphylactoid reaction [Recovering/Resolving]

NARRATIVE: CASE EVENT DATE: 20221206
